FAERS Safety Report 19658565 (Version 1)
Quarter: 2021Q3

REPORT INFORMATION
  Report Type: Spontaneous
  Country: US (occurrence: US)
  Receive Date: 20210804
  Receipt Date: 20210804
  Transmission Date: 20211014
  Serious: No
  Sender: FDA-Public Use
  Company Number: US-PFIZER INC-2021846876

PATIENT
  Age: 46 Year
  Sex: Female

DRUGS (2)
  1. VALIUM [Concomitant]
     Active Substance: DIAZEPAM
     Dosage: UNK
  2. LYRICA [Suspect]
     Active Substance: PREGABALIN
     Dosage: UNK

REACTIONS (3)
  - Urticaria [Unknown]
  - Swelling face [Unknown]
  - Lip swelling [Unknown]
